FAERS Safety Report 20111993 (Version 2)
Quarter: 2021Q4

REPORT INFORMATION
  Report Type: Spontaneous
  Country: DE (occurrence: DE)
  Receive Date: 20211125
  Receipt Date: 20211231
  Transmission Date: 20220303
  Serious: Yes (Other)
  Sender: FDA-Public Use
  Company Number: DE-009507513-2111DEU001498

PATIENT
  Sex: Female

DRUGS (11)
  1. DENOSUMAB [Suspect]
     Active Substance: DENOSUMAB
     Indication: Lung adenocarcinoma
     Dosage: UNK
     Route: 065
     Dates: start: 20190411
  2. PEMETREXED [Suspect]
     Active Substance: PEMETREXED
     Indication: Lung adenocarcinoma
     Dosage: 1ST LINE, 4 CYCLES
     Route: 065
     Dates: start: 20190411, end: 20190613
  3. DOCETAXEL [Suspect]
     Active Substance: DOCETAXEL
     Indication: Lung adenocarcinoma
     Dosage: 2ND LINE, 6 CYCLES, 75MG/M2
     Route: 065
     Dates: start: 20190704, end: 20191017
  4. DOCETAXEL [Suspect]
     Active Substance: DOCETAXEL
     Dosage: RE-CHALLENGE, 75MG/M2, 2 CYCLES
     Route: 065
     Dates: start: 20210204, end: 20210225
  5. NINTEDANIB [Suspect]
     Active Substance: NINTEDANIB
     Indication: Lung adenocarcinoma
     Dosage: 2ND LINE, DAY 2-21, 2 X 200MG
     Route: 065
     Dates: start: 20190705, end: 20190904
  6. NINTEDANIB [Suspect]
     Active Substance: NINTEDANIB
     Dosage: 2ND LINE, 2 X 150MG
     Route: 065
     Dates: start: 20190906
  7. NINTEDANIB [Suspect]
     Active Substance: NINTEDANIB
     Dosage: UNK
     Route: 065
     Dates: start: 20191018, end: 20210204
  8. PEMBROLIZUMAB [Suspect]
     Active Substance: PEMBROLIZUMAB
     Indication: Lung adenocarcinoma
     Dosage: 1ST LINE, 4 CYCLES
     Route: 065
     Dates: start: 20190411, end: 20190613
  9. SELPERCATINIB [Suspect]
     Active Substance: SELPERCATINIB
     Indication: Lung adenocarcinoma
     Dosage: 2 X 160MG DAILY
     Route: 065
     Dates: start: 20210318
  10. CARBOPLATIN [Suspect]
     Active Substance: CARBOPLATIN
     Indication: Lung adenocarcinoma
     Dosage: UNK UNK, CYCLICAL
     Route: 065
     Dates: start: 20190411, end: 20190613
  11. DEXAMETHASONE [Concomitant]
     Active Substance: DEXAMETHASONE
     Dosage: 4MG/DIE

REACTIONS (4)
  - Malignant neoplasm progression [Unknown]
  - Therapy partial responder [Unknown]
  - Nausea [Unknown]
  - Diarrhoea [Unknown]

NARRATIVE: CASE EVENT DATE: 20190601
